FAERS Safety Report 6979144-6 (Version None)
Quarter: 2010Q3

REPORT INFORMATION
  Report Type: 
  Country: None (occurrence: None)
  Receive Date: 20100913
  Receipt Date: 20100908
  Transmission Date: 20110219
  Serious: Yes (Death)
  Sender: FDA-Public Use
  Company Number: PHHY2010JP59568

PATIENT
  Age: 51 Year
  Sex: Male

DRUGS (1)
  1. VOLTAREN [Suspect]
     Route: 054

REACTIONS (2)
  - ANAPHYLACTIC REACTION [None]
  - CARDIO-RESPIRATORY ARREST [None]
